FAERS Safety Report 7593018-1 (Version None)
Quarter: 2011Q3

REPORT INFORMATION
  Report Type: 
  Country: None (occurrence: None)
  Receive Date: 20110706
  Receipt Date: 20110630
  Transmission Date: 20111222
  Serious: Yes (Other)
  Sender: FDA-Public Use
  Company Number: JP-GLAXOSMITHKLINE-B0730483A

PATIENT
  Age: 3 Decade
  Sex: Male

DRUGS (3)
  1. CLONAZEPAM [Concomitant]
     Route: 048
  2. VALPROATE SODIUM [Concomitant]
     Route: 048
  3. LAMICTAL [Suspect]
     Indication: EPILEPSY
     Dosage: 100MG PER DAY
     Route: 048
     Dates: start: 20110501

REACTIONS (1)
  - HYPERAMYLASAEMIA [None]
